FAERS Safety Report 16826183 (Version 1)
Quarter: 2019Q3

REPORT INFORMATION
  Report Type: Spontaneous
  Country: US (occurrence: US)
  Receive Date: 20190919
  Receipt Date: 20190919
  Transmission Date: 20191005
  Serious: No
  Sender: FDA-Public Use
  Company Number: US-AUROBINDO-AUR-APU-2018-043626

PATIENT
  Sex: Female
  Weight: 54.42 kg

DRUGS (1)
  1. ALPRAZOLAM TABLETS USP 0.5MG [Suspect]
     Active Substance: ALPRAZOLAM
     Indication: ANXIETY
     Dosage: 03 TIMES A DAY
     Route: 065

REACTIONS (4)
  - Product substitution issue [Unknown]
  - Diarrhoea [Recovering/Resolving]
  - Abdominal discomfort [Recovering/Resolving]
  - Memory impairment [Recovering/Resolving]
